FAERS Safety Report 6228400-8 (Version None)
Quarter: 2009Q2

REPORT INFORMATION
  Report Type: 
  Country: None (occurrence: None)
  Receive Date: 20090612
  Receipt Date: 20090603
  Transmission Date: 20091009
  Serious: Yes (Other)
  Sender: FDA-Public Use
  Company Number: IT-CELGENEUS-083-20785-09060607

PATIENT

DRUGS (1)
  1. THALOMID [Suspect]
     Indication: MULTIPLE MYELOMA
     Route: 048
     Dates: start: 19990101, end: 20071001

REACTIONS (3)
  - DISEASE PROGRESSION [None]
  - HYPERSENSITIVITY [None]
  - NEUROTOXICITY [None]
